FAERS Safety Report 19733655 (Version 1)
Quarter: 2021Q3

REPORT INFORMATION
  Report Type: Spontaneous
  Country: JP (occurrence: JP)
  Receive Date: 20210823
  Receipt Date: 20210823
  Transmission Date: 20211014
  Serious: Yes (Other)
  Sender: FDA-Public Use
  Company Number: JP-SUN PHARMACEUTICAL INDUSTRIES LTD-2021RR-308378

PATIENT
  Age: 66 Year
  Sex: Male

DRUGS (7)
  1. MIDAZOLAM. [Suspect]
     Active Substance: MIDAZOLAM
     Indication: CATATONIA
     Dosage: 5 MILLIGRAM, DAILY
     Route: 042
  2. BLONANSERIN [Suspect]
     Active Substance: BLONANSERIN
     Dosage: 40 MILLIGRAM, DAILY (PATCH)UNK
     Route: 065
  3. LITHIUM. [Concomitant]
     Active Substance: LITHIUM
     Indication: CATATONIA
     Dosage: 400 MILLIGRAM
     Route: 065
  4. LORAZEPAM. [Suspect]
     Active Substance: LORAZEPAM
     Dosage: 1 MILLIGRAM, DAILY
     Route: 065
  5. LITHIUM. [Concomitant]
     Active Substance: LITHIUM
     Dosage: 600 MILLIGRAM
     Route: 065
  6. BLONANSERIN [Suspect]
     Active Substance: BLONANSERIN
     Indication: CATATONIA
     Dosage: 20 MILLIGRAM, DAILY (PATCH)
     Route: 065
  7. LORAZEPAM. [Suspect]
     Active Substance: LORAZEPAM
     Indication: CATATONIA
     Dosage: 2 MILLIGRAM, DAILY
     Route: 065

REACTIONS (4)
  - Blood creatine phosphokinase increased [Unknown]
  - Hallucination [Recovered/Resolved]
  - Sedation complication [Unknown]
  - Delusion [Recovered/Resolved]
